FAERS Safety Report 6106769-2 (Version None)
Quarter: 2009Q1

REPORT INFORMATION
  Report Type: 
  Country: None (occurrence: None)
  Receive Date: 20090303
  Receipt Date: 20090217
  Transmission Date: 20090719
  Serious: Yes (Other)
  Sender: FDA-Public Use
  Company Number: WAES 0902USA03479

PATIENT
  Age: 57 Year
  Sex: Male

DRUGS (8)
  1. ZOCOR [Suspect]
     Indication: ACUTE CORONARY SYNDROME
     Dosage: 40 MG/DAILY PO
     Route: 048
     Dates: start: 20060621
  2. TAB PLACEBO (UNSPECIFIED) [Suspect]
     Indication: ACUTE CORONARY SYNDROME
     Dosage: PO
     Route: 048
     Dates: start: 20060621
  3. ATACAND [Concomitant]
  4. IMOVANE [Concomitant]
  5. ASPIRIN [Concomitant]
  6. METOPROLOL TARTRATE [Concomitant]
  7. UBIDECARENONE [Concomitant]
  8. VITAMINS (UNSPECIFIED) [Concomitant]

REACTIONS (2)
  - PROSTATE CANCER [None]
  - THYROID CANCER [None]
